FAERS Safety Report 19269906 (Version 2)
Quarter: 2021Q2

REPORT INFORMATION
  Report Type: Spontaneous
  Country: IT (occurrence: IT)
  Receive Date: 20210518
  Receipt Date: 20210610
  Transmission Date: 20210717
  Serious: Yes (Other)
  Sender: FDA-Public Use
  Company Number: IT-BAUSCH-BL-2021-017368

PATIENT
  Age: 71 Year
  Sex: Male

DRUGS (1)
  1. KYNTHEUM [Suspect]
     Active Substance: BRODALUMAB
     Indication: PSORIASIS
     Dosage: SOLUTION FOR INJECTION IN PREFILLED SYRINGE?210 MG EVERY 1 CYCLE
     Route: 058
     Dates: start: 20201101, end: 20201130

REACTIONS (1)
  - Prostate cancer [Not Recovered/Not Resolved]
